FAERS Safety Report 16540519 (Version 1)
Quarter: 2019Q3

REPORT INFORMATION
  Report Type: Spontaneous
  Country: US (occurrence: US)
  Receive Date: 20190708
  Receipt Date: 20190708
  Transmission Date: 20191004
  Serious: No
  Sender: FDA-Public Use
  Company Number: US-SA-2019SA171005

PATIENT
  Age: 87 Year
  Sex: Female

DRUGS (3)
  1. HECTOROL [Suspect]
     Active Substance: DOXERCALCIFEROL
     Indication: HYPERPARATHYROIDISM
     Dosage: 2 MCG, UNK
     Route: 065
     Dates: start: 201902
  2. HECTOROL [Suspect]
     Active Substance: DOXERCALCIFEROL
     Dosage: 4 MCG, UNK
     Route: 065
  3. SENSIPAR [Concomitant]
     Active Substance: CINACALCET HYDROCHLORIDE
     Dosage: UNK UNK, UNK
     Route: 048

REACTIONS (5)
  - Blood calcium decreased [Unknown]
  - Blood phosphorus decreased [Unknown]
  - Blood urea increased [Unknown]
  - Blood creatinine increased [Unknown]
  - Therapy non-responder [Unknown]
